FAERS Safety Report 10048392 (Version 1)
Quarter: 2014Q1

REPORT INFORMATION
  Report Type: Spontaneous
  Country: US (occurrence: US)
  Receive Date: 20140331
  Receipt Date: 20140331
  Transmission Date: 20141002
  Serious: No
  Sender: FDA-Public Use
  Company Number: US-BAYER-2014-045842

PATIENT
  Age: 57 Year
  Sex: Female

DRUGS (1)
  1. CLIMARA [Suspect]
     Indication: OESTROGEN REPLACEMENT THERAPY
     Dosage: 1 DF, OW
     Route: 062
     Dates: start: 2013

REACTIONS (2)
  - Hot flush [Not Recovered/Not Resolved]
  - Drug ineffective [None]
